FAERS Safety Report 11898100 (Version 1)
Quarter: 2016Q1

REPORT INFORMATION
  Report Type: Spontaneous
  Country: US (occurrence: None)
  Receive Date: 20160107
  Receipt Date: 20160107
  Transmission Date: 20160526
  Serious: Yes (Disabling)
  Sender: FDA-Public Use
  Company Number: None

PATIENT
  Age: 54 Year
  Sex: Male
  Weight: 58.97 kg

DRUGS (1)
  1. FLUOXETINE HCL 20MG RX NUMBER 706066-7009 [Suspect]
     Active Substance: FLUOXETINE HYDROCHLORIDE
     Indication: PRODUCT USED FOR UNKNOWN INDICATION
     Route: 048
     Dates: start: 20150324, end: 20150405

REACTIONS (9)
  - Heart rate decreased [None]
  - Vomiting [None]
  - Anger [None]
  - Tongue disorder [None]
  - Diarrhoea [None]
  - Blood pressure decreased [None]
  - Lung disorder [None]
  - Abdominal pain lower [None]
  - Speech disorder [None]

NARRATIVE: CASE EVENT DATE: 20150402
